FAERS Safety Report 4405086-6 (Version None)
Quarter: 2004Q2

REPORT INFORMATION
  Report Type: 
  Country: None (occurrence: None)
  Receive Date: 20040621
  Receipt Date: 20040325
  Transmission Date: 20050107
  Serious: Yes (Other)
  Sender: FDA-Public Use
  Company Number: USA-2004-0014115

PATIENT
  Age: 19 Year
  Sex: Female

DRUGS (2)
  1. OXYCONTIN [Suspect]
     Dosage: MG,
  2. ALCOHOL (ETHANOL) [Suspect]
     Dosage: L,

REACTIONS (2)
  - GAIT DISTURBANCE [None]
  - POLYSUBSTANCE ABUSE [None]
